FAERS Safety Report 10625611 (Version 1)
Quarter: 2014Q4

REPORT INFORMATION
  Report Type: Spontaneous
  Country: PT (occurrence: PT)
  Receive Date: 20141204
  Receipt Date: 20141204
  Transmission Date: 20150529
  Serious: Yes (Death, Other)
  Sender: FDA-Public Use
  Company Number: PT-CELGENE-PRT-2014114903

PATIENT

DRUGS (1)
  1. THALIDOMIDE CELGENE [Suspect]
     Active Substance: THALIDOMIDE
     Indication: PLASMA CELL MYELOMA
     Route: 048

REACTIONS (14)
  - Second primary malignancy [Fatal]
  - Gastric cancer [Unknown]
  - Non-Hodgkin^s lymphoma [Unknown]
  - Rectal cancer [Unknown]
  - Glioblastoma multiforme [Unknown]
  - Bladder cancer [Unknown]
  - Prostate cancer [Unknown]
  - Death [Fatal]
  - Acute myeloid leukaemia [Unknown]
  - Myelodysplastic syndrome [Unknown]
  - Lung neoplasm malignant [Unknown]
  - Salivary gland cancer [Unknown]
  - Endometrial cancer [Unknown]
  - Laryngeal cancer [Unknown]
